FAERS Safety Report 5187092-X (Version None)
Quarter: 2006Q4

REPORT INFORMATION
  Report Type: 
  Country: None (occurrence: None)
  Receive Date: 20061214
  Receipt Date: 20060921
  Transmission Date: 20070319
  Serious: Yes (Other)
  Sender: FDA-Public Use
  Company Number: JPKYO-S-20060027

PATIENT
  Age: 57 Year
  Sex: Male

DRUGS (2)
  1. NAVELBINE [Suspect]
     Indication: LUNG NEOPLASM MALIGNANT
     Dosage: 40 MG INFUSION X 1 IV
     Route: 042
     Dates: start: 20060822
  2. SEROTONE [Concomitant]

REACTIONS (5)
  - ANAPHYLACTIC SHOCK [None]
  - ANXIETY [None]
  - COLD SWEAT [None]
  - DYSPNOEA [None]
  - STRIDOR [None]
